FAERS Safety Report 16729235 (Version 1)
Quarter: 2019Q4

REPORT INFORMATION
  Report Type: Spontaneous
  Country: US (occurrence: US)
  Receive Date: 20190821
  Receipt Date: 20190821
  Transmission Date: 20200122
  Serious: Yes (Other)
  Sender: FDA-Public Use
  Company Number: None

PATIENT
  Age: 54 Year
  Sex: Female
  Weight: 75.15 kg

DRUGS (6)
  1. DYSPORT [Suspect]
     Active Substance: ABOBOTULINUMTOXINA
     Indication: SKIN WRINKLING
     Dosage: ?          QUANTITY:1 INJECTION(S);OTHER ROUTE:INJECTED AT MOUTH, CROWS FEET, FOREHEAD?
     Dates: start: 20190817, end: 20190817
  2. VIT D [Concomitant]
     Active Substance: VITAMIN D NOS
  3. TRAZODONE [Concomitant]
     Active Substance: TRAZODONE HYDROCHLORIDE
  4. ELMORON [Concomitant]
  5. LEXAPRO [Concomitant]
     Active Substance: ESCITALOPRAM OXALATE
  6. ESTRIDOL [Concomitant]

REACTIONS (2)
  - Dyskinesia [None]
  - Dysarthria [None]

NARRATIVE: CASE EVENT DATE: 20190820
